FAERS Safety Report 13637780 (Version 1)
Quarter: 2017Q2

REPORT INFORMATION
  Report Type: Spontaneous
  Country: AR (occurrence: AR)
  Receive Date: 20170609
  Receipt Date: 20170609
  Transmission Date: 20170830
  Serious: Yes (Other)
  Sender: FDA-Public Use
  Company Number: AR-PFIZER INC-2017251299

PATIENT
  Age: 71 Year
  Sex: Male

DRUGS (1)
  1. INLYTA [Suspect]
     Active Substance: AXITINIB
     Indication: RENAL CANCER
     Dosage: 10 MG, DAILY
     Dates: start: 20151101

REACTIONS (2)
  - Blood pressure increased [Recovering/Resolving]
  - Carotid artery occlusion [Recovering/Resolving]

NARRATIVE: CASE EVENT DATE: 201704
